FAERS Safety Report 7085015-X (Version None)
Quarter: 2010Q4

REPORT INFORMATION
  Report Type: 
  Country: None (occurrence: None)
  Receive Date: 20101105
  Receipt Date: 20101102
  Transmission Date: 20110411
  Serious: Yes (Hospitalization)
  Sender: FDA-Public Use
  Company Number: US-WYE-H18527310

PATIENT
  Sex: Male
  Weight: 48.12 kg

DRUGS (3)
  1. EFFEXOR XR [Suspect]
     Indication: PANIC ATTACK
     Route: 048
     Dates: start: 20090901, end: 20091201
  2. EFFEXOR XR [Suspect]
     Indication: AGITATION
     Route: 048
     Dates: start: 20091201, end: 20100201
  3. EFFEXOR [Suspect]
     Route: 048
     Dates: start: 20100101

REACTIONS (13)
  - ABNORMAL DREAMS [None]
  - ASTHENIA [None]
  - CONDITION AGGRAVATED [None]
  - CONFUSIONAL STATE [None]
  - DISORIENTATION [None]
  - DRUG WITHDRAWAL SYNDROME [None]
  - HALLUCINATION, VISUAL [None]
  - HEADACHE [None]
  - INSOMNIA [None]
  - NIGHTMARE [None]
  - PSYCHOTIC DISORDER [None]
  - TREMOR [None]
  - WEIGHT INCREASED [None]
